FAERS Safety Report 15843665 (Version 1)
Quarter: 2019Q1

REPORT INFORMATION
  Report Type: Spontaneous
  Country: US (occurrence: US)
  Receive Date: 20190118
  Receipt Date: 20190118
  Transmission Date: 20190417
  Serious: No
  Sender: FDA-Public Use
  Company Number: US-ACHAOGEN INC-US-ACHN-18-00021

PATIENT
  Age: 57 Year
  Sex: Male
  Weight: 74.46 kg

DRUGS (1)
  1. ZEMDRI [Suspect]
     Active Substance: PLAZOMICIN
     Indication: URINARY TRACT INFECTION
     Route: 042
     Dates: start: 20181001

REACTIONS (2)
  - Injection site pruritus [Recovered/Resolved]
  - Throat irritation [Recovered/Resolved]

NARRATIVE: CASE EVENT DATE: 20181001
